FAERS Safety Report 7524395-5 (Version None)
Quarter: 2011Q2

REPORT INFORMATION
  Report Type: 
  Country: None (occurrence: None)
  Receive Date: 20110525
  Receipt Date: 20110428
  Transmission Date: 20111010
  Serious: Yes (Hospitalization, Other)
  Sender: FDA-Public Use
  Company Number: 20108939

PATIENT
  Age: 53 Year
  Sex: Male

DRUGS (1)
  1. LIORESAL [Suspect]
     Indication: MUSCLE SPASTICITY
     Dosage: SEE B5, MCG, DAILY, INTRATHECAL
     Route: 039

REACTIONS (2)
  - DEVICE RELATED INFECTION [None]
  - NO THERAPEUTIC RESPONSE [None]
